FAERS Safety Report 25462136 (Version 1)
Quarter: 2025Q2

REPORT INFORMATION
  Report Type: Spontaneous
  Country: CN (occurrence: CN)
  Receive Date: 20250620
  Receipt Date: 20250620
  Transmission Date: 20250717
  Serious: Yes (Hospitalization)
  Sender: PFIZER
  Company Number: CN-PFIZER INC-PV202500072563

PATIENT
  Age: 74 Year
  Sex: Male
  Weight: 85 kg

DRUGS (1)
  1. VFEND [Suspect]
     Active Substance: VORICONAZOLE
     Indication: Bronchopulmonary aspergillosis
     Dosage: 300 MG, 2X/DAY
     Route: 041
     Dates: start: 20250606, end: 20250609

REACTIONS (5)
  - Oedema peripheral [Unknown]
  - Pain in extremity [Unknown]
  - Erythema [Unknown]
  - Skin disorder [Unknown]
  - Skin toxicity [Unknown]

NARRATIVE: CASE EVENT DATE: 20250611
